FAERS Safety Report 9747573 (Version 1)
Quarter: 2013Q4

REPORT INFORMATION
  Report Type: Spontaneous
  Country: US (occurrence: None)
  Receive Date: 20131205
  Receipt Date: 20131205
  Transmission Date: 20140711
  Serious: Yes (Other)
  Sender: FDA-Public Use
  Company Number: 001633689A

PATIENT
  Age: 27 Year
  Sex: Female

DRUGS (4)
  1. PROACTIV PLUS SKIN SMOOTHING EXFOLIATOR [Suspect]
     Indication: ACNE
     Dosage: ONCE DAILY DERMAL
     Dates: start: 20131111, end: 20131116
  2. PORE TARGETING TREATMENT [Suspect]
     Indication: ACNE
     Dosage: ONCE DAILY DERMAL
     Dates: start: 20131111, end: 20131116
  3. PROACTIV PLUS COMPLEXION PERFECTING HYDRATOR [Suspect]
     Indication: ACNE
     Dosage: ONCE DAILY DERMAL
     Dates: start: 20131111, end: 20131116
  4. SKIN PURIFYING MASK [Suspect]
     Indication: ACNE
     Dosage: ONCE DAILY DERMAL
     Dates: start: 20131111, end: 20131116

REACTIONS (4)
  - Eye swelling [None]
  - Rash erythematous [None]
  - Hypersensitivity [None]
  - Rash pruritic [None]
